FAERS Safety Report 9052047 (Version 1)
Quarter: 2013Q1

REPORT INFORMATION
  Report Type: Spontaneous
  Country: FR (occurrence: FR)
  Receive Date: 20130207
  Receipt Date: 20130207
  Transmission Date: 20140127
  Serious: Yes (Hospitalization)
  Sender: FDA-Public Use
  Company Number: FR-JNJFOC-20130200866

PATIENT
  Age: 94 None
  Sex: Female

DRUGS (7)
  1. XARELTO [Suspect]
     Indication: PRODUCT USED FOR UNKNOWN INDICATION
     Route: 048
     Dates: end: 20121122
  2. CORDARONE [Suspect]
     Indication: PRODUCT USED FOR UNKNOWN INDICATION
     Route: 048
     Dates: end: 20121123
  3. VERAPAMIL [Suspect]
     Indication: PRODUCT USED FOR UNKNOWN INDICATION
     Route: 048
     Dates: end: 20121118
  4. KARDEGIC [Suspect]
     Indication: PRODUCT USED FOR UNKNOWN INDICATION
     Route: 048
  5. LEVOTHYROX [Concomitant]
     Route: 048
  6. LAROXYL [Concomitant]
     Route: 048
     Dates: end: 20121122
  7. IMOVANE [Concomitant]
     Route: 048
     Dates: end: 20121122

REACTIONS (3)
  - Subdural haemorrhage [Recovering/Resolving]
  - Haematoma [Recovering/Resolving]
  - Fall [Recovered/Resolved]
